FAERS Safety Report 5099895-0 (Version None)
Quarter: 2006Q3

REPORT INFORMATION
  Report Type: 
  Country: None (occurrence: None)
  Receive Date: 20060908
  Receipt Date: 20060821
  Transmission Date: 20061208
  Serious: Yes (Hospitalization, Other)
  Sender: FDA-Public Use
  Company Number: US-AMGEN-US190591

PATIENT
  Sex: Male

DRUGS (8)
  1. NEULASTA [Suspect]
     Indication: CHEMOTHERAPY
     Route: 058
     Dates: start: 20010101
  2. NEUPOGEN [Suspect]
     Indication: CHEMOTHERAPY
     Route: 065
  3. ARANESP [Suspect]
     Indication: ANAEMIA OF MALIGNANT DISEASE
  4. PROCRIT [Suspect]
     Route: 065
     Dates: start: 20050101
  5. ZOFRAN [Concomitant]
     Route: 065
  6. ERYTHROMYCIN [Concomitant]
     Route: 065
  7. AMOXICILLIN [Concomitant]
     Route: 065
  8. ADVIL [Concomitant]
     Route: 065

REACTIONS (6)
  - BONE PAIN [None]
  - INFECTION [None]
  - MYELODYSPLASTIC SYNDROME [None]
  - NAUSEA [None]
  - NON-CARDIAC CHEST PAIN [None]
  - VOMITING [None]
